FAERS Safety Report 15158398 (Version 1)
Quarter: 2018Q3

REPORT INFORMATION
  Report Type: Report from Study
  Country: None (occurrence: US)
  Receive Date: 20180718
  Receipt Date: 20180718
  Transmission Date: 20181010
  Serious: Yes (Other)
  Sender: FDA-Public Use
  Company Number: US-ABBVIE-18K-163-2420416-00

PATIENT
  Age: 61 Year
  Sex: Female

DRUGS (1)
  1. HUMIRA [Suspect]
     Active Substance: ADALIMUMAB
     Indication: RHEUMATOID ARTHRITIS
     Route: 058
     Dates: start: 2017

REACTIONS (11)
  - Blood count abnormal [Unknown]
  - Oral pain [Unknown]
  - Contusion [Unknown]
  - Tooth infection [Not Recovered/Not Resolved]
  - Pyrexia [Not Recovered/Not Resolved]
  - Faeces discoloured [Unknown]
  - Melaena [Unknown]
  - Dizziness [Unknown]
  - Tooth fracture [Not Recovered/Not Resolved]
  - Swelling face [Unknown]
  - Nausea [Unknown]

NARRATIVE: CASE EVENT DATE: 201807
